FAERS Safety Report 25961718 (Version 1)
Quarter: 2025Q4

REPORT INFORMATION
  Report Type: Report from Study
  Country: US (occurrence: US)
  Receive Date: 20251027
  Receipt Date: 20251027
  Transmission Date: 20260119
  Serious: Yes (Hospitalization)
  Sender: GILEAD
  Company Number: US-GILEAD-2025-0734073

PATIENT
  Sex: Male

DRUGS (1)
  1. AMBRISENTAN [Suspect]
     Active Substance: AMBRISENTAN
     Indication: Pulmonary hypertension
     Dosage: LETAIRIS 5MG ORALLY DAILY
     Route: 048
     Dates: start: 20250417

REACTIONS (3)
  - Balance disorder [Unknown]
  - Head injury [Unknown]
  - Fall [Unknown]
